FAERS Safety Report 7249067-6 (Version None)
Quarter: 2011Q1

REPORT INFORMATION
  Report Type: 
  Country: None (occurrence: None)
  Receive Date: 20110128
  Receipt Date: 20100818
  Transmission Date: 20110831
  Serious: Yes (Other)
  Sender: FDA-Public Use
  Company Number: US-BAYER-201024912NA

PATIENT
  Sex: Female
  Weight: 100 kg

DRUGS (2)
  1. YAZ [Suspect]
     Indication: MENSTRUAL CYCLE MANAGEMENT
     Route: 048
     Dates: start: 20080222, end: 20080530
  2. IBUPROFEN [Concomitant]
     Indication: HEADACHE
     Dates: start: 20080101, end: 20080615

REACTIONS (8)
  - NAUSEA [None]
  - VOMITING [None]
  - CHOLECYSTITIS CHRONIC [None]
  - BILIARY DYSKINESIA [None]
  - DIARRHOEA [None]
  - OBESITY [None]
  - ABDOMINAL PAIN UPPER [None]
  - APHAGIA [None]
